FAERS Safety Report 8616087-6 (Version None)
Quarter: 2012Q3

REPORT INFORMATION
  Report Type: 
  Country: None (occurrence: None)
  Receive Date: 20120823
  Receipt Date: 20120810
  Transmission Date: 20120928
  Serious: Yes (Other)
  Sender: FDA-Public Use
  Company Number: JP-ROCHE-1102298

PATIENT

DRUGS (5)
  1. ROACTEMRA [Suspect]
     Route: 064
     Dates: start: 20100402
  2. ROACTEMRA [Suspect]
     Route: 064
     Dates: start: 20090915
  3. ROACTEMRA [Suspect]
     Route: 064
     Dates: start: 20100101, end: 20100205
  4. ROACTEMRA [Suspect]
     Indication: RHEUMATOID ARTHRITIS
     Route: 064
     Dates: start: 20080902, end: 20080929
  5. ROACTEMRA [Suspect]
     Route: 064
     Dates: start: 20081021, end: 20090818

REACTIONS (2)
  - FOETAL HEART RATE ABNORMAL [None]
  - MATERNAL EXPOSURE TIMING UNSPECIFIED [None]
